FAERS Safety Report 10035364 (Version 2)
Quarter: 2014Q2

REPORT INFORMATION
  Report Type: Spontaneous
  Country: DE (occurrence: None)
  Receive Date: 20140321
  Receipt Date: 20140417
  Transmission Date: 20141212
  Serious: Yes (Death)
  Sender: FDA-Public Use
  Company Number: FK201400943

PATIENT
  Age: 42 Year
  Sex: Female
  Weight: 100 kg

DRUGS (1)
  1. PROPOFOL [Suspect]
     Indication: SEDATION
     Dosage: 200MG, 1 IN 1 D, INTRAVENOUS NOT OTHERWISE SPECIFIED
     Route: 042
     Dates: start: 20140201, end: 20140201

REACTIONS (5)
  - Medication error [None]
  - Drug administered at inappropriate site [None]
  - Brain oedema [None]
  - Pneumonia staphylococcal [None]
  - Drug administration error [None]
